FAERS Safety Report 7551687-6 (Version None)
Quarter: 2011Q2

REPORT INFORMATION
  Report Type: 
  Country: None (occurrence: None)
  Receive Date: 20110616
  Receipt Date: 20110601
  Transmission Date: 20111010
  Serious: Yes (Disabling)
  Sender: FDA-Public Use
  Company Number: CR-GENENTECH-319921

PATIENT
  Sex: Female

DRUGS (1)
  1. RITUXIMAB [Suspect]
     Indication: NON-HODGKIN'S LYMPHOMA
     Dosage: UNK
     Route: 042
     Dates: start: 20110225

REACTIONS (3)
  - SENSORY LOSS [None]
  - PAIN IN JAW [None]
  - RASH [None]
